FAERS Safety Report 5636361-5 (Version None)
Quarter: 2008Q1

REPORT INFORMATION
  Report Type: 
  Country: None (occurrence: None)
  Receive Date: 20080225
  Receipt Date: 20080217
  Transmission Date: 20080703
  Serious: Yes (Other)
  Sender: FDA-Public Use
  Company Number: PHEH2008US02022

PATIENT
  Sex: Male

DRUGS (2)
  1. STALEVO 100 [Suspect]
     Route: 048
  2. ANTIHYPERTENSIVE DRUGS [Suspect]
     Indication: BLOOD PRESSURE

REACTIONS (4)
  - BLOOD PRESSURE DIASTOLIC DECREASED [None]
  - BLOOD PRESSURE FLUCTUATION [None]
  - BLOOD PRESSURE SYSTOLIC INCREASED [None]
  - OEDEMA [None]
